FAERS Safety Report 14610072 (Version 1)
Quarter: 2018Q1

REPORT INFORMATION
  Report Type: Spontaneous
  Country: CN (occurrence: CN)
  Receive Date: 20180307
  Receipt Date: 20180307
  Transmission Date: 20180509
  Serious: Yes (Other)
  Sender: FDA-Public Use
  Company Number: PHHY2018CN030318

PATIENT
  Age: 65 Year
  Sex: Female

DRUGS (9)
  1. LEFLUNOMIDE. [Suspect]
     Active Substance: LEFLUNOMIDE
     Indication: RHEUMATOID ARTHRITIS
     Dosage: 20 MG, QD
     Route: 048
  2. CALCIUM CARBONATE. [Concomitant]
     Active Substance: CALCIUM CARBONATE
     Indication: RHEUMATOID ARTHRITIS
     Dosage: 600 MG, UNK
     Route: 048
  3. METHOTREXATE. [Suspect]
     Active Substance: METHOTREXATE
     Indication: RHEUMATOID ARTHRITIS
     Dosage: 10 MG, QW
     Route: 048
  4. METHYLPREDNISOLONE. [Concomitant]
     Active Substance: METHYLPREDNISOLONE
     Indication: RHEUMATOID ARTHRITIS
     Dosage: 8 MG, QD
     Route: 048
  5. TEPRENONE [Concomitant]
     Active Substance: TEPRENONE
     Indication: RHEUMATOID ARTHRITIS
     Dosage: 50 MG, TID
     Route: 048
  6. VITAMIN D3 [Concomitant]
     Active Substance: CHOLECALCIFEROL
     Indication: RHEUMATOID ARTHRITIS
     Dosage: 125 IU, QD
     Route: 048
  7. CELECOXIB. [Concomitant]
     Active Substance: CELECOXIB
     Indication: RHEUMATOID ARTHRITIS
     Dosage: 0.2 G, QD
     Route: 048
  8. PANTOPRAZOLE [Concomitant]
     Active Substance: PANTOPRAZOLE
     Indication: RHEUMATOID ARTHRITIS
     Dosage: 40 MG, QD
     Route: 048
  9. PANTOPRAZOLE [Concomitant]
     Active Substance: PANTOPRAZOLE
     Dosage: 40 MG, Q12H FOR 3 DAYS
     Route: 048

REACTIONS (4)
  - Bone marrow failure [Recovering/Resolving]
  - Cholecystitis acute [Recovering/Resolving]
  - Lung infection [Recovering/Resolving]
  - Gastric haemorrhage [Recovering/Resolving]
